FAERS Safety Report 20873367 (Version 2)
Quarter: 2022Q2

REPORT INFORMATION
  Report Type: Spontaneous
  Country: IT (occurrence: IT)
  Receive Date: 20220525
  Receipt Date: 20220615
  Transmission Date: 20220720
  Serious: Yes (Hospitalization)
  Sender: FDA-Public Use
  Company Number: None

PATIENT
  Age: 43 Year
  Sex: Male

DRUGS (3)
  1. KEYTRUDA [Suspect]
     Active Substance: PEMBROLIZUMAB
     Indication: Adenosquamous cell lung cancer stage IV
     Dosage: 200 MILLIGRAM, 1 CYCLICAL
     Route: 042
     Dates: start: 20211125, end: 20211125
  2. PEMETREXED [Concomitant]
     Active Substance: PEMETREXED
     Indication: Adenosquamous cell lung cancer stage IV
     Dosage: 960 MILLIGRAM
     Route: 042
     Dates: start: 20211125, end: 20211125
  3. CISPLATIN [Concomitant]
     Active Substance: CISPLATIN
     Indication: Adenosquamous cell lung cancer stage IV
     Dosage: 144 MILLIGRAM
     Route: 042
     Dates: start: 20211125, end: 20211125

REACTIONS (3)
  - Neutropenia [Recovered/Resolved]
  - Gastrointestinal disorder [Recovered/Resolved]
  - Renal failure [Recovered/Resolved]

NARRATIVE: CASE EVENT DATE: 20211203
